FAERS Safety Report 22149211 (Version 1)
Quarter: 2023Q1

REPORT INFORMATION
  Report Type: Spontaneous
  Country: US (occurrence: US)
  Receive Date: 20230329
  Receipt Date: 20230329
  Transmission Date: 20230418
  Serious: No
  Sender: FDA-Public Use
  Company Number: US-drreddys-SPO/USA/23/0160461

PATIENT
  Age: 26 Year
  Sex: Female

DRUGS (1)
  1. ZENATANE [Suspect]
     Active Substance: ISOTRETINOIN
     Indication: Product used for unknown indication
     Dosage: RMA ISSUE DATE : 18 OCTOBER 2022 09:32:11 AM, 21 NOVEMBER 2022 04:40:39 PM AND 23 DECEMBER 2022 01:1

REACTIONS (1)
  - Liver function test increased [Unknown]
